FAERS Safety Report 7315176-6 (Version None)
Quarter: 2011Q1

REPORT INFORMATION
  Report Type: 
  Country: None (occurrence: None)
  Receive Date: 20110225
  Receipt Date: 20110215
  Transmission Date: 20110831
  Serious: Yes (Other)
  Sender: FDA-Public Use
  Company Number: US-ROCHE-734365

PATIENT
  Sex: Male
  Weight: 72.6 kg

DRUGS (5)
  1. CLARAVIS [Suspect]
     Route: 048
     Dates: start: 20071210
  2. ACCUTANE [Suspect]
     Indication: ACNE
     Route: 048
     Dates: start: 20070101
  3. SOLODYN [Concomitant]
     Indication: ACNE
     Dates: start: 20070628
  4. ACCUTANE [Suspect]
     Route: 048
     Dates: end: 20081231
  5. ACCUTANE [Suspect]
     Route: 048
     Dates: start: 20071210, end: 20080201

REACTIONS (8)
  - DRY SKIN [None]
  - ACNE [None]
  - COLITIS ULCERATIVE [None]
  - RECTAL HAEMORRHAGE [None]
  - HAEMORRHOIDS [None]
  - NAUSEA [None]
  - INFLAMMATORY BOWEL DISEASE [None]
  - ABDOMINAL PAIN [None]
